FAERS Safety Report 7042360-1 (Version None)
Quarter: 2010Q4

REPORT INFORMATION
  Report Type: 
  Country: None (occurrence: None)
  Receive Date: 20101013
  Receipt Date: 20091028
  Transmission Date: 20110411
  Serious: No
  Sender: FDA-Public Use
  Company Number: US-ASTRAZENECA-2009SE23077

PATIENT
  Age: 68 Year
  Sex: Male
  Weight: 98.4 kg

DRUGS (2)
  1. SYMBICORT [Suspect]
     Route: 055
     Dates: start: 20090901
  2. BREATHING DRUGS UNKNOWN [Concomitant]
     Indication: EMPHYSEMA

REACTIONS (2)
  - DRUG INEFFECTIVE [None]
  - DYSPNOEA [None]
